FAERS Safety Report 18751245 (Version 1)
Quarter: 2021Q1

REPORT INFORMATION
  Report Type: Other
  Country: CA (occurrence: CA)
  Receive Date: 20210118
  Receipt Date: 20210118
  Transmission Date: 20210419
  Serious: Yes (Hospitalization)
  Sender: FDA-Public Use
  Company Number: CA-ACCORD-214449

PATIENT
  Age: 47 Year
  Sex: Female

DRUGS (4)
  1. PIPERACILLIN SODIUM/TAZOBACTAM SODIUM [Concomitant]
     Active Substance: PIPERACILLIN SODIUM\TAZOBACTAM SODIUM
     Indication: SEPTIC RASH
     Dosage: 4 EVERY 1 DAYS
     Route: 042
  2. PIPERACILLIN SODIUM/TAZOBACTAM SODIUM [Suspect]
     Active Substance: PIPERACILLIN SODIUM\TAZOBACTAM SODIUM
     Indication: SEPTIC RASH
     Dosage: 1 EVERY 6 HOURS
     Route: 042
  3. CLONAZEPAM. [Concomitant]
     Active Substance: CLONAZEPAM
     Indication: ANXIETY
  4. OXALIPLATIN. [Suspect]
     Active Substance: OXALIPLATIN
     Indication: RECTAL CANCER METASTATIC

REACTIONS (6)
  - Dyspnoea [Unknown]
  - Toxicity to various agents [Unknown]
  - Zoonotic bacterial infection [Unknown]
  - Choking sensation [Unknown]
  - Staphylococcal infection [Unknown]
  - Aphonia [Unknown]
